FAERS Safety Report 14385117 (Version 1)
Quarter: 2018Q1

REPORT INFORMATION
  Report Type: Spontaneous
  Country: US (occurrence: US)
  Receive Date: 20180115
  Receipt Date: 20180115
  Transmission Date: 20180509
  Serious: Yes (Life-Threatening, Hospitalization)
  Sender: FDA-Public Use
  Company Number: US-LPDUSPRD-20180009

PATIENT
  Age: 22 Year
  Sex: Male
  Weight: 70 kg

DRUGS (2)
  1. ROPIVACAINE 0.5% [Suspect]
     Active Substance: ROPIVACAINE
     Dosage: 125 MG
     Route: 050
  2. LIDOCAINE HCL INJECTION, USP (0517-9402-01) [Suspect]
     Active Substance: LIDOCAINE HYDROCHLORIDE
     Dosage: 130 MG
     Route: 042

REACTIONS (5)
  - Ventricular tachycardia [Unknown]
  - Cardiac arrest [Unknown]
  - Cardiac failure [Unknown]
  - Off label use [Unknown]
  - Cardiac failure congestive [Unknown]
